FAERS Safety Report 14348625 (Version 1)
Quarter: 2018Q1

REPORT INFORMATION
  Report Type: Spontaneous
  Country: CN (occurrence: CN)
  Receive Date: 20180103
  Receipt Date: 20180103
  Transmission Date: 20180509
  Serious: Yes (Death)
  Sender: FDA-Public Use
  Company Number: CN-ASTRAZENECA-2018SE00156

PATIENT
  Age: 75 Year
  Sex: Male

DRUGS (5)
  1. BRILINTA [Suspect]
     Active Substance: TICAGRELOR
     Dosage: 180.0MG ONCE/SINGLE ADMINISTRATION
     Route: 048
     Dates: start: 20171223
  2. BAYASPIRIN [Concomitant]
     Active Substance: ASPIRIN
     Dosage: 1.0DF ONCE/SINGLE ADMINISTRATION
  3. LIPITOR [Concomitant]
     Active Substance: ATORVASTATIN CALCIUM
  4. BRILINTA [Suspect]
     Active Substance: TICAGRELOR
     Dosage: 90.0MG ONCE/SINGLE ADMINISTRATION
     Route: 048
  5. BAYASPIRIN [Concomitant]
     Active Substance: ASPIRIN
     Dosage: 300.0MG ONCE/SINGLE ADMINISTRATION
     Dates: start: 20171223

REACTIONS (2)
  - Liver injury [Fatal]
  - Hepatorenal failure [Fatal]
